FAERS Safety Report 23608840 (Version 2)
Quarter: 2024Q2

REPORT INFORMATION
  Report Type: Report from Study
  Country: US (occurrence: US)
  Receive Date: 20240308
  Receipt Date: 20240507
  Transmission Date: 20240716
  Serious: Yes (Hospitalization, Other)
  Sender: FDA-Public Use
  Company Number: US-SA-SAC20240110000121

PATIENT
  Age: 78 Year
  Sex: Female

DRUGS (2)
  1. DUPILUMAB [Suspect]
     Active Substance: DUPILUMAB
     Indication: Asthma
     Dosage: UNK
     Route: 058
     Dates: start: 20201204, end: 20210317
  2. DUPILUMAB [Suspect]
     Active Substance: DUPILUMAB
     Dosage: 200 MG, QOW
     Route: 058
     Dates: start: 20210317

REACTIONS (9)
  - Myeloid leukaemia [Unknown]
  - Elephantiasis [Unknown]
  - Fluid retention [Unknown]
  - Asthenia [Unknown]
  - Hair texture abnormal [Unknown]
  - Foreign body sensation in eyes [Unknown]
  - Illness [Not Recovered/Not Resolved]
  - Erythema [Unknown]
  - Dry eye [Unknown]
